FAERS Safety Report 8993565 (Version 1)
Quarter: 2013Q1

REPORT INFORMATION
  Report Type: Report from Study
  Country: AU (occurrence: AU)
  Receive Date: 20130102
  Receipt Date: 20130102
  Transmission Date: 20140127
  Serious: Yes (Hospitalization)
  Sender: FDA-Public Use
  Company Number: AU-BRISTOL-MYERS SQUIBB COMPANY-15044621

PATIENT
  Age: 81 Year
  Sex: Male

DRUGS (7)
  1. DASATINIB [Suspect]
     Indication: PROSTATE CANCER
     Dosage: 19MAY09:08SEP2009:100MG?09SEP2009:70MG
     Route: 048
     Dates: start: 20090519, end: 20100315
  2. DOCETAXEL [Suspect]
     Indication: PROSTATE CANCER
     Route: 042
  3. PREDNISONE [Suspect]
     Indication: PROSTATE CANCER
     Route: 048
  4. DEXAMETHASONE [Suspect]
     Indication: PREMEDICATION
  5. MS CONTIN [Concomitant]
  6. CALTRATE [Concomitant]
  7. PANTOPRAZOLE [Concomitant]

REACTIONS (4)
  - Pulmonary venous thrombosis [Not Recovered/Not Resolved]
  - Chest pain [Recovered/Resolved]
  - Back pain [Recovered/Resolved]
  - Pyrexia [Recovered/Resolved]
